FAERS Safety Report 22263290 (Version 2)
Quarter: 2023Q2

REPORT INFORMATION
  Report Type: Spontaneous
  Country: GB (occurrence: GB)
  Receive Date: 20230428
  Receipt Date: 20230629
  Transmission Date: 20230721
  Serious: Yes (Hospitalization)
  Sender: FDA-Public Use
  Company Number: GB-AMGEN-GBRSP2023071528

PATIENT
  Age: 29 Year
  Sex: Female

DRUGS (1)
  1. ADALIMUMAB [Suspect]
     Active Substance: ADALIMUMAB
     Indication: Proctitis
     Dosage: 40 MILLIGRAM, Q2WK
     Route: 058
     Dates: start: 2021

REACTIONS (2)
  - Surgery [Unknown]
  - Malaise [Unknown]

NARRATIVE: CASE EVENT DATE: 20230101
